FAERS Safety Report 7417280-0 (Version None)
Quarter: 2011Q2

REPORT INFORMATION
  Report Type: 
  Country: None (occurrence: None)
  Receive Date: 20110415
  Receipt Date: 20110408
  Transmission Date: 20111010
  Serious: Yes (Other)
  Sender: FDA-Public Use
  Company Number: ES-BRISTOL-MYERS SQUIBB COMPANY-15644065

PATIENT
  Age: 38 Year
  Sex: Male
  Weight: 60 kg

DRUGS (2)
  1. METHOTREXATE [Suspect]
  2. ORENCIA [Suspect]
     Indication: RHEUMATOID ARTHRITIS
     Dosage: EV,NO OF DOSE =7,FOR SIX MONTHS
     Dates: start: 20091102

REACTIONS (3)
  - VISION BLURRED [None]
  - HEADACHE [None]
  - DIPLOPIA [None]
